FAERS Safety Report 8156324 (Version 11)
Quarter: 2013Q4

REPORT INFORMATION
  Report Type: Report from Study
  Country: DE (occurrence: DE)
  Receive Date: 20110926
  Receipt Date: 20131211
  Transmission Date: 20140711
  Serious: Yes (Hospitalization)
  Sender: FDA-Public Use
  Company Number: DE-BRISTOL-MYERS SQUIBB COMPANY-16001844

PATIENT
  Age: 56 Year
  Sex: Female
  Weight: 95 kg

DRUGS (8)
  1. IPILIMUMAB [Suspect]
     Indication: MALIGNANT MELANOMA
     Route: 042
     Dates: start: 20110713, end: 20110915
  2. FORTECORTIN [Concomitant]
     Indication: HYPOPHYSITIS
     Dosage: 12MG FROM 26SEP2011
     Route: 048
     Dates: start: 20110920, end: 20110925
  3. DECORTIN [Concomitant]
     Route: 048
     Dates: start: 20111031
  4. PANTOZOL [Concomitant]
     Route: 048
     Dates: start: 20111031
  5. KLACID [Concomitant]
     Route: 048
     Dates: start: 20111111
  6. TAZOBAC [Concomitant]
     Route: 042
     Dates: start: 20111111
  7. ARIXTRA [Concomitant]
     Route: 058
     Dates: start: 20111111, end: 20111119
  8. FRAXIPARINE [Concomitant]
     Route: 058
     Dates: start: 20111119

REACTIONS (10)
  - Hypophysitis [Unknown]
  - Hypothyroidism [Recovered/Resolved with Sequelae]
  - Rash maculo-papular [Recovered/Resolved]
  - Pyrexia [Recovered/Resolved with Sequelae]
  - Malignant neoplasm progression [Not Recovered/Not Resolved]
  - Malaise [Recovered/Resolved]
  - Pulmonary embolism [Recovered/Resolved]
  - Deep vein thrombosis [Unknown]
  - Renal failure [Recovered/Resolved]
  - Nephrolithiasis [Unknown]
